FAERS Safety Report 22344918 (Version 1)
Quarter: 2023Q2

REPORT INFORMATION
  Report Type: Spontaneous
  Country: US (occurrence: US)
  Receive Date: 20230519
  Receipt Date: 20230519
  Transmission Date: 20230721
  Serious: No
  Sender: FDA-Public Use
  Company Number: US-002147023-NVSC2023US115169

PATIENT
  Sex: Male

DRUGS (2)
  1. VOTRIENT [Suspect]
     Active Substance: PAZOPANIB HYDROCHLORIDE
     Indication: Soft tissue sarcoma
     Dosage: 600 MG, QD
     Route: 048
     Dates: start: 202303
  2. VOTRIENT [Suspect]
     Active Substance: PAZOPANIB HYDROCHLORIDE
     Indication: Malignant connective tissue neoplasm

REACTIONS (2)
  - Hair colour changes [Unknown]
  - Diarrhoea [Unknown]
